FAERS Safety Report 9683638 (Version 3)
Quarter: 2014Q1

REPORT INFORMATION
  Report Type: Spontaneous
  Country: JP (occurrence: JP)
  Receive Date: 20131112
  Receipt Date: 20140122
  Transmission Date: 20141002
  Serious: Yes (Life-Threatening, Hospitalization)
  Sender: FDA-Public Use
  Company Number: JP-PFIZER INC-2013281218

PATIENT
  Age: 61 Year
  Sex: Female
  Weight: 51 kg

DRUGS (1)
  1. SOLU-CORTEF [Suspect]
     Indication: ALLERGY PROPHYLAXIS
     Dosage: 200 MG
     Route: 041
     Dates: start: 20130926

REACTIONS (3)
  - Shock [Recovered/Resolved]
  - Nausea [Unknown]
  - Hypoaesthesia [Unknown]
